FAERS Safety Report 12252546 (Version 1)
Quarter: 2016Q2

REPORT INFORMATION
  Report Type: Report from Study
  Country: BR (occurrence: BR)
  Receive Date: 20160411
  Receipt Date: 20160411
  Transmission Date: 20160815
  Serious: Yes (Hospitalization, Other)
  Sender: FDA-Public Use
  Company Number: PHHY2016BR047025

PATIENT
  Age: 74 Year
  Sex: Female
  Weight: 90 kg

DRUGS (3)
  1. DIOVAN [Suspect]
     Active Substance: VALSARTAN
     Dosage: 2 DF (80 MG), BID
     Route: 048
     Dates: start: 20151107
  2. PLAVIX [Concomitant]
     Active Substance: CLOPIDOGREL BISULFATE
     Indication: PRODUCT USED FOR UNKNOWN INDICATION
     Dosage: UNK
     Route: 065
  3. DIOVAN [Suspect]
     Active Substance: VALSARTAN
     Indication: HYPERTENSION
     Dosage: 320 MG, BID
     Route: 048
     Dates: end: 20151107

REACTIONS (4)
  - Myocardial infarction [Recovering/Resolving]
  - Gastrointestinal haemorrhage [Recovered/Resolved]
  - Renal impairment [Unknown]
  - Blood pressure decreased [Unknown]

NARRATIVE: CASE EVENT DATE: 20151107
